FAERS Safety Report 4590027-1 (Version None)
Quarter: 2005Q1

REPORT INFORMATION
  Report Type: 
  Country: None (occurrence: None)
  Receive Date: 20050216
  Receipt Date: 20050131
  Transmission Date: 20050727
  Serious: Yes (Death)
  Sender: FDA-Public Use
  Company Number: B0349824A

PATIENT
  Age: 30 Year
  Sex: Female

DRUGS (4)
  1. WELLBUTRIN SR [Suspect]
     Dosage: 150 MG/ ORAL
     Route: 048
  2. PAXIL [Suspect]
     Dosage: 20 MG/ORAL
     Route: 048
  3. CITALOPRAM (CITALOPRAM) [Suspect]
     Dosage: 20 MG / ORAL
     Route: 048
  4. CLONAZEPAM [Suspect]
     Dosage: .5 MG / ORAL
     Route: 048

REACTIONS (10)
  - BLOOD PRESSURE DECREASED [None]
  - CARDIAC ARREST [None]
  - COMPLETED SUICIDE [None]
  - CONVULSION [None]
  - EJECTION FRACTION DECREASED [None]
  - INTENTIONAL MISUSE [None]
  - MENTAL IMPAIRMENT [None]
  - MENTAL STATUS CHANGES [None]
  - NAUSEA [None]
  - VENTRICULAR DYSFUNCTION [None]
